FAERS Safety Report 10543088 (Version 3)
Quarter: 2015Q3

REPORT INFORMATION
  Report Type: Spontaneous
  Country: US (occurrence: US)
  Receive Date: 20141027
  Receipt Date: 20150813
  Transmission Date: 20151125
  Serious: Yes (Life-Threatening, Hospitalization, Other)
  Sender: FDA-Public Use
  Company Number: US-JNJFOC-20141013806

PATIENT
  Age: 44 Year
  Sex: Female

DRUGS (6)
  1. RIVAROXABAN [Suspect]
     Active Substance: RIVAROXABAN
     Indication: PRODUCT USED FOR UNKNOWN INDICATION
     Route: 048
  2. ASPIRIN. [Concomitant]
     Active Substance: ASPIRIN
     Route: 065
  3. SIMVASTATIN. [Concomitant]
     Active Substance: SIMVASTATIN
     Route: 065
  4. ESCITALOPRAM [Concomitant]
     Active Substance: ESCITALOPRAM OXALATE
     Route: 065
  5. FUROSEMIDE. [Concomitant]
     Active Substance: FUROSEMIDE
     Route: 065
  6. OMEPRAZOLE. [Concomitant]
     Active Substance: OMEPRAZOLE
     Route: 065

REACTIONS (14)
  - Cerebrovascular accident [Unknown]
  - Myocardial oedema [Unknown]
  - Ischaemia [Unknown]
  - Antiphospholipid syndrome [Recovered/Resolved with Sequelae]
  - Cardiogenic shock [Recovered/Resolved]
  - Cardiac failure acute [Not Recovered/Not Resolved]
  - Thrombocytopenia [Unknown]
  - Amaurosis fugax [Unknown]
  - Atrial fibrillation [Unknown]
  - Peripheral artery thrombosis [Unknown]
  - Gastrointestinal haemorrhage [Unknown]
  - Systolic dysfunction [Not Recovered/Not Resolved]
  - Myocardial necrosis [Recovered/Resolved with Sequelae]
  - Intracardiac thrombus [Unknown]
